FAERS Safety Report 18826453 (Version 1)
Quarter: 2021Q1

REPORT INFORMATION
  Report Type: Spontaneous
  Country: US (occurrence: US)
  Receive Date: 20210202
  Receipt Date: 20210202
  Transmission Date: 20210419
  Serious: Yes (Disabling)
  Sender: FDA-Public Use
  Company Number: US-TEVA-2021-US-1875692

PATIENT
  Age: 65 Year
  Sex: Female
  Weight: 137.8 kg

DRUGS (22)
  1. DOCETAXEL SAGENT [Suspect]
     Active Substance: DOCETAXEL
     Indication: BREAST CANCER
     Dosage: 165MG, EVERY 3 WEEKS AND COMBINATION OR SEQUENCE:TAXOTERE,CYCLOPHOSPHAMIDE.NUMBER OF CYCLES:4
     Route: 065
     Dates: start: 20140113, end: 20140317
  2. ZOFRAN [Concomitant]
     Active Substance: ONDANSETRON HYDROCHLORIDE
     Dosage: 20
     Dates: start: 20140203
  3. CYCLOPHOSPHAMIDE. [Concomitant]
     Active Substance: CYCLOPHOSPHAMIDE
     Dosage: 1300MG, CYCLE?2 DAY 1
     Dates: start: 20140203
  4. MVI [Concomitant]
     Active Substance: VITAMINS
     Route: 065
  5. ZOFRAN [Concomitant]
     Active Substance: ONDANSETRON HYDROCHLORIDE
     Dosage: 20
     Dates: start: 20140113
  6. DOCETAXEL SAGENT [Suspect]
     Active Substance: DOCETAXEL
     Route: 065
  7. DOCETAXEL ACCORD [Suspect]
     Active Substance: DOCETAXEL
     Indication: BREAST CANCER
     Dosage: 165MG, EVERY 3 WEEKS AND COMBINATION OR SEQUENCE:TAXOTERE,CYCLOPHOSPHAMIDE.NUMBER OF CYCLES:4
     Route: 065
     Dates: start: 20140113, end: 20140317
  8. ATENOLOL. [Concomitant]
     Active Substance: ATENOLOL
     Dosage: ONGOING
     Dates: start: 2013
  9. GLIPIZIDE. [Concomitant]
     Active Substance: GLIPIZIDE
     Dosage: ONGOING
     Dates: start: 2013
  10. ACETYLSALICYLIC ACID [Concomitant]
     Active Substance: ASPIRIN
     Route: 065
  11. PROAIR HFA [Concomitant]
     Active Substance: ALBUTEROL SULFATE
     Route: 065
  12. DEXOMETHASONE [Concomitant]
     Dosage: 10 MG
     Dates: start: 20140317
  13. ZOFRAN [Concomitant]
     Active Substance: ONDANSETRON HYDROCHLORIDE
     Dosage: 20
     Dates: start: 20140317
  14. DEXOMETHASONE [Concomitant]
     Dosage: 10MG
     Dates: start: 20140203
  15. ZOFRAN [Concomitant]
     Active Substance: ONDANSETRON HYDROCHLORIDE
     Dosage: 20
     Dates: start: 20140224
  16. ATORVASTATIN [Concomitant]
     Active Substance: ATORVASTATIN
     Dosage: ONGOING
     Dates: start: 2013
  17. CYCLOPHOSPHAMIDE. [Concomitant]
     Active Substance: CYCLOPHOSPHAMIDE
     Dosage: 1300MG,  CYCLE?4 DAY 1
     Dates: start: 20140317
  18. CYCLOPHOSPHAMIDE. [Concomitant]
     Active Substance: CYCLOPHOSPHAMIDE
     Dosage: 1300MG,  CYCLE?3 DAY 1
     Dates: start: 20140224
  19. CYCLOPHOSPHAMIDE. [Concomitant]
     Active Substance: CYCLOPHOSPHAMIDE
     Dosage: 1300MG, CYCLE?1 DAY 1
     Dates: start: 20140113
  20. DEXOMETHASONE [Concomitant]
     Dosage: 20MG
     Dates: start: 20140224
  21. LETROZOLE. [Concomitant]
     Active Substance: LETROZOLE
     Dosage: 2.5 MILLIGRAM DAILY;
     Dates: start: 20140101
  22. DEXOMETHASONE [Concomitant]
     Dosage: 10MG
     Dates: start: 20140113

REACTIONS (5)
  - Alopecia areata [Not Recovered/Not Resolved]
  - Hair colour changes [Not Recovered/Not Resolved]
  - Hair texture abnormal [Not Recovered/Not Resolved]
  - Alopecia totalis [Not Recovered/Not Resolved]
  - Madarosis [Not Recovered/Not Resolved]

NARRATIVE: CASE EVENT DATE: 20140917
